FAERS Safety Report 7853187 (Version 4)
Quarter: 2016Q3

REPORT INFORMATION
  Report Type: Spontaneous
  Country: US (occurrence: US)
  Receive Date: 20110314
  Receipt Date: 20160706
  Transmission Date: 20161109
  Serious: Yes (Other)
  Sender: FDA-Public Use
  Company Number: US-ASTRAZENECA-2011SE11840

PATIENT
  Age: 66 Year
  Sex: Female
  Weight: 47.2 kg

DRUGS (14)
  1. NEXIUM [Suspect]
     Active Substance: ESOMEPRAZOLE MAGNESIUM
     Indication: GASTROOESOPHAGEAL REFLUX DISEASE
     Route: 048
  2. NEXIUM [Suspect]
     Active Substance: ESOMEPRAZOLE MAGNESIUM
     Indication: GASTROOESOPHAGEAL REFLUX DISEASE
     Dosage: 40.0MG UNKNOWN
     Route: 048
     Dates: start: 20160427
  3. REFRESH EYE DROPS [Concomitant]
     Indication: DRY EYE
  4. CALCIUM CITRATE PLUS D3 [Concomitant]
     Indication: OSTEOPOROSIS
     Dosage: CALCIUM CITRATE PLUS D3 IS 500 IUS OF VITAMIN D3 WITH 630 MG OF CALCIUM
  5. NEXIUM [Suspect]
     Active Substance: ESOMEPRAZOLE MAGNESIUM
     Indication: GASTROOESOPHAGEAL REFLUX DISEASE
     Dosage: 40.0MG UNKNOWN
     Route: 048
     Dates: end: 201604
  6. NEXIUM [Suspect]
     Active Substance: ESOMEPRAZOLE MAGNESIUM
     Indication: HIATUS HERNIA
     Dosage: 40.0MG UNKNOWN
     Route: 048
     Dates: end: 201604
  7. CRESTOR [Suspect]
     Active Substance: ROSUVASTATIN CALCIUM
     Indication: BLOOD CHOLESTEROL INCREASED
     Route: 048
  8. NEXIUM [Suspect]
     Active Substance: ESOMEPRAZOLE MAGNESIUM
     Indication: HIATUS HERNIA
     Dosage: 40.0MG UNKNOWN
     Route: 048
     Dates: start: 20160427
  9. PREMARIN [Concomitant]
     Active Substance: ESTROGENS, CONJUGATED
  10. ANASTROZOLE. [Suspect]
     Active Substance: ANASTROZOLE
     Indication: BREAST CANCER
     Route: 048
     Dates: start: 20110704
  11. PREVACID [Concomitant]
     Active Substance: LANSOPRAZOLE
  12. NEXIUM [Suspect]
     Active Substance: ESOMEPRAZOLE MAGNESIUM
     Indication: HIATUS HERNIA
     Route: 048
  13. GLYCOPYRROLETE [Concomitant]
     Indication: IRRITABLE BOWEL SYNDROME
  14. LOSARTAN POT [Concomitant]
     Active Substance: LOSARTAN POTASSIUM
     Indication: HYPERTENSION

REACTIONS (9)
  - Breast cancer [Unknown]
  - Blood cholesterol increased [Unknown]
  - Lower limb fracture [Unknown]
  - Anxiety [Unknown]
  - Off label use [Unknown]
  - Drug ineffective [Unknown]
  - Dysphagia [Unknown]
  - Abdominal pain upper [Unknown]
  - Product use issue [Unknown]

NARRATIVE: CASE EVENT DATE: 2001
